FAERS Safety Report 9440843 (Version 1)
Quarter: 2013Q3

REPORT INFORMATION
  Report Type: Spontaneous
  Country: US (occurrence: None)
  Receive Date: 20130801
  Receipt Date: 20130801
  Transmission Date: 20140515
  Serious: Yes (Hospitalization)
  Sender: FDA-Public Use
  Company Number: 2013P1013235

PATIENT
  Age: 48 Year
  Sex: Male

DRUGS (8)
  1. INFUMORPH [Suspect]
     Indication: PAIN
  2. INFUMORPH [Suspect]
     Indication: BACK PAIN
  3. LIORESAL (BACLOFEN) [Concomitant]
  4. CYMBALTA (DULOXETINE HYDROCHLORIDE) [Concomitant]
  5. NORCO/VICODIN (HYDROCODONE/ACETAMINOPHEN) [Concomitant]
  6. LYRICA (PREGABALIN) [Concomitant]
  7. MOTRIN (IBUPROFEN) [Concomitant]
  8. AMBIEN (ZOLPIDEM) [Concomitant]

REACTIONS (24)
  - Nausea [None]
  - Hyperhidrosis [None]
  - Dyspnoea [None]
  - Diarrhoea [None]
  - Fatigue [None]
  - Tremor [None]
  - Nervousness [None]
  - Anxiety [None]
  - Device failure [None]
  - Drug withdrawal syndrome [None]
  - Abdominal tenderness [None]
  - Blood pressure increased [None]
  - Drug ineffective [None]
  - Tenderness [None]
  - Cervical radiculopathy [None]
  - Poor quality sleep [None]
  - Intervertebral disc degeneration [None]
  - Arthropathy [None]
  - Vertebral foraminal stenosis [None]
  - Arthritis [None]
  - Areflexia [None]
  - Cervical spinal stenosis [None]
  - Muscle tightness [None]
  - Decreased appetite [None]
